FAERS Safety Report 5613388-0 (Version None)
Quarter: 2008Q1

REPORT INFORMATION
  Report Type: 
  Country: None (occurrence: None)
  Receive Date: 20080129
  Receipt Date: 20080117
  Transmission Date: 20080703
  Serious: Yes (Death, Life-Threatening, Hospitalization, Disabling)
  Sender: FDA-Public Use
  Company Number: 200712AGG00768

PATIENT
  Age: 80 Year
  Sex: Male

DRUGS (8)
  1. AGGRASTAT [Suspect]
     Indication: ANGINA UNSTABLE
     Dosage: (4 MCG/KG, 0.1 MCG/KG)
     Dates: start: 20070807, end: 20070807
  2. AGGRASTAT [Suspect]
     Indication: ANGINA UNSTABLE
     Dosage: (4 MCG/KG, 0.1 MCG/KG)
     Dates: start: 20070807, end: 20070809
  3. ASPIRIN [Concomitant]
  4. CLOPIDOGREL BISULFATE [Concomitant]
  5. METFORMIN HCL [Concomitant]
  6. HEPARIN LMW [Concomitant]
  7. ZOCOR [Concomitant]
  8. SELOKEN [Concomitant]

REACTIONS (2)
  - CARDIAC ARREST [None]
  - CEREBROVASCULAR ACCIDENT [None]
